FAERS Safety Report 4317813-7 (Version None)
Quarter: 2004Q1

REPORT INFORMATION
  Report Type: 
  Country: None (occurrence: None)
  Receive Date: 20040312
  Receipt Date: 20040302
  Transmission Date: 20041129
  Serious: Yes (Other)
  Sender: FDA-Public Use
  Company Number: 2004201770US

PATIENT
  Age: 44 Year
  Sex: Male

DRUGS (3)
  1. MYCOBUTIN [Suspect]
     Indication: MYCOBACTERIUM AVIUM COMPLEX INFECTION
     Dosage: 300 MG, DAILY
  2. CLARIBID (CLARITHROMYCIN) TABLET [Suspect]
     Indication: MYCOBACTERIUM AVIUM COMPLEX INFECTION
     Dosage: 500 MG, BID
  3. ETHAMBUTOL HCL [Concomitant]

REACTIONS (4)
  - ARTHRALGIA [None]
  - DRUG INTERACTION [None]
  - MYALGIA [None]
  - VISION BLURRED [None]
